FAERS Safety Report 17201264 (Version 2)
Quarter: 2020Q1

REPORT INFORMATION
  Report Type: Spontaneous
  Country: US (occurrence: US)
  Receive Date: 20191226
  Receipt Date: 20200317
  Transmission Date: 20200409
  Serious: No
  Sender: FDA-Public Use
  Company Number: US-JNJFOC-20191236713

PATIENT
  Age: 70 Year
  Sex: Female
  Weight: 89.44 kg

DRUGS (3)
  1. VERAPAMIL [Concomitant]
     Active Substance: VERAPAMIL HYDROCHLORIDE
     Indication: BLOOD PRESSURE MEASUREMENT
     Dosage: DRUG START: SPRING 2019.
     Dates: start: 2019
  2. TREMFYA [Suspect]
     Active Substance: GUSELKUMAB
     Dosage: THE PATIENT INJECTS TO LOWER ABDOMEN. LOT NUMBER: THE BOX WAS RECYCLED AND SYRINGE WAS DISPOSED.
     Route: 058
  3. TREMFYA [Suspect]
     Active Substance: GUSELKUMAB
     Indication: PSORIASIS
     Route: 058
     Dates: start: 20191007

REACTIONS (5)
  - Nasopharyngitis [Recovered/Resolved]
  - Product dose omission [Unknown]
  - Injury associated with device [Recovered/Resolved]
  - Psoriasis [Recovering/Resolving]
  - Accidental exposure to product [Unknown]

NARRATIVE: CASE EVENT DATE: 2019
